FAERS Safety Report 7712071-5 (Version None)
Quarter: 2011Q3

REPORT INFORMATION
  Report Type: 
  Country: None (occurrence: None)
  Receive Date: 20110823
  Receipt Date: 20110812
  Transmission Date: 20111222
  Serious: Yes (Hospitalization)
  Sender: FDA-Public Use
  Company Number: 2011SP002743

PATIENT
  Age: 23 Year
  Sex: Female
  Weight: 75 kg

DRUGS (16)
  1. TRMAZEPAM [Concomitant]
  2. SEROQUEL [Concomitant]
  3. MESYLATE [Concomitant]
  4. BENZTROPINE MESYLATE [Concomitant]
  5. LATUDA [Suspect]
     Indication: BIPOLAR DISORDER
     Dosage: 40 MG;QD;ORAL, 80 MG;QD;ORAL, 40 MG;QD;ORAL
     Route: 048
     Dates: start: 20110101, end: 20110101
  6. LATUDA [Suspect]
     Indication: PSYCHOTIC DISORDER
     Dosage: 40 MG;QD;ORAL, 80 MG;QD;ORAL, 40 MG;QD;ORAL
     Route: 048
     Dates: start: 20110101, end: 20110101
  7. LATUDA [Suspect]
     Indication: BIPOLAR DISORDER
     Dosage: 40 MG;QD;ORAL, 80 MG;QD;ORAL, 40 MG;QD;ORAL
     Route: 048
     Dates: start: 20110101, end: 20110101
  8. LATUDA [Suspect]
     Indication: PSYCHOTIC DISORDER
     Dosage: 40 MG;QD;ORAL, 80 MG;QD;ORAL, 40 MG;QD;ORAL
     Route: 048
     Dates: start: 20110101, end: 20110101
  9. LATUDA [Suspect]
     Indication: BIPOLAR DISORDER
     Dosage: 40 MG;QD;ORAL, 80 MG;QD;ORAL, 40 MG;QD;ORAL
     Route: 048
     Dates: start: 20110101, end: 20110801
  10. LATUDA [Suspect]
     Indication: PSYCHOTIC DISORDER
     Dosage: 40 MG;QD;ORAL, 80 MG;QD;ORAL, 40 MG;QD;ORAL
     Route: 048
     Dates: start: 20110101, end: 20110801
  11. LITHIUM [Concomitant]
  12. RISPERDAL [Concomitant]
  13. THIOTHIXENE [Concomitant]
  14. TRILEPTAL [Concomitant]
  15. ZYPREXA [Concomitant]
  16. ZYPREXA [Suspect]
     Dates: start: 20110802

REACTIONS (7)
  - AGGRESSION [None]
  - MUSCULOSKELETAL PAIN [None]
  - SUICIDAL IDEATION [None]
  - ANGER [None]
  - IMPULSE-CONTROL DISORDER [None]
  - AKATHISIA [None]
  - DYSKINESIA [None]
